FAERS Safety Report 7734011-5 (Version None)
Quarter: 2011Q3

REPORT INFORMATION
  Report Type: 
  Country: None (occurrence: None)
  Receive Date: 20110907
  Receipt Date: 20110901
  Transmission Date: 20111222
  Serious: Yes (Other)
  Sender: FDA-Public Use
  Company Number: FR-ROCHE-800050

PATIENT
  Age: 80 Year
  Sex: Male

DRUGS (8)
  1. XELODA [Suspect]
     Indication: COLON CANCER
     Route: 065
     Dates: start: 20110401, end: 20110822
  2. AMLODIPINE BESYLATE [Concomitant]
  3. POTASSIUM CHLORIDE [Concomitant]
  4. FUROSEMIDE [Concomitant]
  5. GLUCOPHAGE [Concomitant]
  6. JANUVIA [Concomitant]
  7. BISOPROLOL FUMARATE [Concomitant]
  8. PERINDOPRIL ERBUMINE [Concomitant]

REACTIONS (3)
  - HAEMATOMA [None]
  - INTERNATIONAL NORMALISED RATIO INCREASED [None]
  - PROTHROMBIN LEVEL DECREASED [None]
